FAERS Safety Report 6637739-3 (Version None)
Quarter: 2010Q1

REPORT INFORMATION
  Report Type: 
  Country: None (occurrence: None)
  Receive Date: 20100312
  Receipt Date: 20100301
  Transmission Date: 20100710
  Serious: Yes (Other)
  Sender: FDA-Public Use
  Company Number: 234567K09USA

PATIENT
  Age: 47 Year
  Sex: Female
  Weight: 55 kg

DRUGS (4)
  1. REBIF [Suspect]
     Indication: MULTIPLE SCLEROSIS
     Dosage: 44 MCG, 3 IN 1 WEEKS, SUBCUTANEOUS
     Route: 058
     Dates: start: 20080101
  2. KEPPRA [Concomitant]
  3. PROVIGIL [Concomitant]
  4. BROMOCRIPTINE MESYLATE [Concomitant]

REACTIONS (5)
  - ARTHRALGIA [None]
  - MUSCULAR WEAKNESS [None]
  - SURGICAL FAILURE [None]
  - SYNOVITIS [None]
  - TRIGGER FINGER [None]
